FAERS Safety Report 6701070-8 (Version None)
Quarter: 2010Q2

REPORT INFORMATION
  Report Type: 
  Country: None (occurrence: None)
  Receive Date: 20100428
  Receipt Date: 20100414
  Transmission Date: 20101027
  Serious: Yes (Hospitalization, Other)
  Sender: FDA-Public Use
  Company Number: US-ELI_LILLY_AND_COMPANY-US201004004714

PATIENT
  Sex: Female

DRUGS (5)
  1. FORTEO [Suspect]
     Indication: OSTEOPOROSIS
     Dosage: 20 UG, DAILY (1/D)
     Dates: start: 20091001, end: 20100101
  2. BENICAR [Concomitant]
     Dosage: 40 MG, DAILY (1/D)
  3. HYDRALAZINE HCL [Concomitant]
     Dosage: 25 MG, 3/D
  4. HYDROCHLOROTHIAZIDE [Concomitant]
     Dosage: 25 MG, 1 OR 2 TABLETS DAILY (1/D), 2ND TABLET AS NEEDED
  5. DIGOXIN [Concomitant]
     Dosage: 250 UG, DAILY (1/D)

REACTIONS (5)
  - ASTHENIA [None]
  - FALL [None]
  - FEMUR FRACTURE [None]
  - RIB FRACTURE [None]
  - TRAUMATIC LUNG INJURY [None]
